FAERS Safety Report 4821626-7 (Version None)
Quarter: 2005Q4

REPORT INFORMATION
  Report Type: 
  Country: None (occurrence: None)
  Receive Date: 20051107
  Receipt Date: 20050912
  Transmission Date: 20060501
  Serious: Yes (Death, Life-Threatening, Hospitalization, Other)
  Sender: FDA-Public Use
  Company Number: 2005AP04878

PATIENT
  Age: 17134 Day
  Sex: Male
  Weight: 47 kg

DRUGS (3)
  1. IRESSA [Suspect]
     Indication: NON-SMALL CELL LUNG CANCER
     Route: 048
     Dates: start: 20050902, end: 20050905
  2. IRESSA [Suspect]
     Route: 048
     Dates: start: 20050921, end: 20050927
  3. RADIOTHERAPY [Concomitant]
     Dosage: 40 GY ADMINISTERED TEN TIMES

REACTIONS (12)
  - DYSPNOEA [None]
  - HYPOXIA [None]
  - LUNG INFILTRATION [None]
  - OBSTRUCTIVE AIRWAYS DISORDER [None]
  - PERICARDIAL EFFUSION [None]
  - PNEUMONIA [None]
  - PNEUMOTHORAX [None]
  - PULMONARY EMBOLISM [None]
  - RESPIRATORY DISTRESS [None]
  - SHOCK [None]
  - SINUS BRADYCARDIA [None]
  - SUBCUTANEOUS EMPHYSEMA [None]
